FAERS Safety Report 18727284 (Version 1)
Quarter: 2021Q1

REPORT INFORMATION
  Report Type: Spontaneous
  Country: US (occurrence: US)
  Receive Date: 20210111
  Receipt Date: 20210111
  Transmission Date: 20210419
  Serious: No
  Sender: FDA-Public Use
  Company Number: US-ROCHE-2675416

PATIENT
  Sex: Male

DRUGS (3)
  1. HEMLIBRA [Suspect]
     Active Substance: EMICIZUMAB-KXWH
     Indication: FACTOR VIII DEFICIENCY
     Dosage: MAINTENANCE DOSE: INJECT HEMLIBRA 420MG SUBCUTANEOUSLY EVERY 4 WEEKS IN 2 DIFFERENT INJECTION SITE.G
     Route: 058
  2. HYDROCODONE/ACETAMINOPHEN [Concomitant]
     Active Substance: ACETAMINOPHEN\HYDROCODONE
  3. ZOFRAN [Concomitant]
     Active Substance: ONDANSETRON HYDROCHLORIDE

REACTIONS (6)
  - Mass [Unknown]
  - Nausea [Unknown]
  - Vomiting [Unknown]
  - Contusion [Unknown]
  - Abdominal pain upper [Unknown]
  - Diarrhoea [Unknown]
